FAERS Safety Report 8386440-7 (Version None)
Quarter: 2012Q2

REPORT INFORMATION
  Report Type: 
  Country: None (occurrence: None)
  Receive Date: 20120525
  Receipt Date: 20120518
  Transmission Date: 20120825
  Serious: Yes (Other)
  Sender: FDA-Public Use
  Company Number: CO-PFIZER INC-2012123654

PATIENT
  Age: 10 Year
  Sex: Female

DRUGS (2)
  1. GONADORELIN INJ [Suspect]
     Indication: PRECOCIOUS PUBERTY
     Dosage: UNK
     Dates: end: 20120201
  2. GENOTROPIN [Suspect]
     Indication: PRECOCIOUS PUBERTY
     Dosage: UNK
     Dates: end: 20120201

REACTIONS (3)
  - UMBILICAL HERNIA [None]
  - DRUG INEFFECTIVE [None]
  - FOOT DEFORMITY [None]
